FAERS Safety Report 5395595-8 (Version None)
Quarter: 2007Q3

REPORT INFORMATION
  Report Type: 
  Country: None (occurrence: None)
  Receive Date: 20070724
  Receipt Date: 20070710
  Transmission Date: 20080115
  Serious: Yes (Other)
  Sender: FDA-Public Use
  Company Number: US-ELI_LILLY_AND_COMPANY-US200707002870

PATIENT
  Sex: Female

DRUGS (5)
  1. CYMBALTA [Suspect]
     Dosage: 60 MG, UNK
     Dates: start: 20060601
  2. CYMBALTA [Suspect]
     Dosage: 60 MG, 2/D
  3. ZANTAC 150 [Concomitant]
  4. PREMPRO [Concomitant]
  5. ACIPHEX [Concomitant]

REACTIONS (3)
  - ALANINE AMINOTRANSFERASE INCREASED [None]
  - ASPARTATE AMINOTRANSFERASE INCREASED [None]
  - OVARIAN CANCER [None]
